FAERS Safety Report 10287467 (Version 1)
Quarter: 2014Q3

REPORT INFORMATION
  Report Type: Spontaneous
  Country: CA (occurrence: CA)
  Receive Date: 20140709
  Receipt Date: 20140709
  Transmission Date: 20150326
  Serious: Yes (Other)
  Sender: FDA-Public Use
  Company Number: CA-GLAXOSMITHKLINE-A1080272A

PATIENT
  Age: 55 Year
  Sex: Male

DRUGS (2)
  1. PAXIL [Concomitant]
     Active Substance: PAROXETINE HYDROCHLORIDE
  2. REQUIP [Suspect]
     Active Substance: ROPINIROLE HYDROCHLORIDE
     Indication: PARKINSON^S DISEASE
     Route: 048
     Dates: start: 199911, end: 201003

REACTIONS (3)
  - Hypersexuality [Unknown]
  - Narcolepsy [Unknown]
  - Intentional self-injury [Unknown]

NARRATIVE: CASE EVENT DATE: 200001
